FAERS Safety Report 17051196 (Version 1)
Quarter: 2019Q4

REPORT INFORMATION
  Report Type: Report from Study
  Country: US (occurrence: US)
  Receive Date: 20191120
  Receipt Date: 20191120
  Transmission Date: 20200122
  Serious: Yes (Hospitalization, Other)
  Sender: FDA-Public Use
  Company Number: US-ROCHE-2468611

PATIENT
  Age: 38 Year
  Sex: Male
  Weight: 70.37 kg

DRUGS (1)
  1. OCREVUS [Suspect]
     Active Substance: OCRELIZUMAB
     Indication: PRIMARY PROGRESSIVE MULTIPLE SCLEROSIS
     Dosage: FULL DOSE ;ONGOING: YES
     Route: 042
     Dates: start: 201810

REACTIONS (8)
  - Heart rate increased [Recovering/Resolving]
  - Sepsis [Recovered/Resolved]
  - Bladder spasm [Not Recovered/Not Resolved]
  - Body temperature increased [Recovered/Resolved]
  - Skin infection [Recovered/Resolved]
  - Blood pressure abnormal [Recovered/Resolved]
  - Furuncle [Recovered/Resolved]
  - Urinary tract infection [Recovered/Resolved]

NARRATIVE: CASE EVENT DATE: 20190928
